FAERS Safety Report 11617704 (Version 3)
Quarter: 2015Q4

REPORT INFORMATION
  Report Type: Report from Study
  Country: AR (occurrence: AR)
  Receive Date: 20151009
  Receipt Date: 20151221
  Transmission Date: 20160304
  Serious: Yes (Death, Other)
  Sender: FDA-Public Use
  Company Number: AR-ABBVIE-15P-007-1466724-00

PATIENT
  Age: 71 Year
  Sex: Male

DRUGS (1)
  1. ZEMPLAR [Suspect]
     Active Substance: PARICALCITOL
     Indication: RENAL FAILURE
     Route: 042
     Dates: start: 20140501

REACTIONS (6)
  - Pain in extremity [Fatal]
  - Lower respiratory tract infection viral [Fatal]
  - Peripheral arterial occlusive disease [Fatal]
  - Skin ulcer [Fatal]
  - Localised infection [Fatal]
  - Poor peripheral circulation [Fatal]

NARRATIVE: CASE EVENT DATE: 201507
